FAERS Safety Report 4409753-X (Version None)
Quarter: 2004Q3

REPORT INFORMATION
  Report Type: 
  Country: None (occurrence: None)
  Receive Date: 20040727
  Receipt Date: 20040727
  Transmission Date: 20050211
  Serious: Yes (Hospitalization)
  Sender: FDA-Public Use
  Company Number: None

PATIENT
  Age: 49 Year
  Sex: Female
  Weight: 66 kg

DRUGS (11)
  1. LEVAQUIN [Suspect]
     Indication: PYELONEPHRITIS
     Dosage: 500MG  Q DAY  ORAL
     Route: 048
     Dates: start: 20040720, end: 20040723
  2. IMIPRAMINE [Suspect]
     Indication: DEPRESSION
     Dosage: 50MG  Q HS  ORAL
     Route: 048
     Dates: start: 20040720, end: 20040726
  3. LEVAQUIN [Concomitant]
  4. OTC IRON PRODUCT [Concomitant]
  5. PROZAC [Concomitant]
  6. REMERON [Concomitant]
  7. SOMA [Concomitant]
  8. INDERAL LA [Concomitant]
  9. NEURONTIN [Concomitant]
  10. CLARITIN-D [Concomitant]
  11. ACIPHEX [Concomitant]

REACTIONS (2)
  - CHEST PAIN [None]
  - ELECTROCARDIOGRAM QT CORRECTED INTERVAL PROLONGED [None]
